FAERS Safety Report 6857262-0 (Version None)
Quarter: 2010Q3

REPORT INFORMATION
  Report Type: 
  Country: None (occurrence: None)
  Receive Date: 20100719
  Receipt Date: 20100713
  Transmission Date: 20110219
  Serious: Yes (Hospitalization)
  Sender: FDA-Public Use
  Company Number: DE-CEPHALON-2010003796

PATIENT
  Age: 65 Year
  Sex: Female

DRUGS (5)
  1. TREANDA [Suspect]
     Indication: CHRONIC LYMPHOCYTIC LEUKAEMIA
     Route: 042
     Dates: start: 20100126, end: 20100127
  2. KEVATRIL [Concomitant]
     Dates: start: 20100126, end: 20100127
  3. FENISTIL [Concomitant]
     Dates: start: 20100125
  4. MABTHERA [Concomitant]
     Indication: CHRONIC LYMPHOCYTIC LEUKAEMIA
     Dates: start: 20100125
  5. PARACETAMOL [Concomitant]
     Indication: PAIN

REACTIONS (1)
  - RENAL FAILURE [None]
